FAERS Safety Report 7028685-4 (Version None)
Quarter: 2010Q4

REPORT INFORMATION
  Report Type: 
  Country: None (occurrence: None)
  Receive Date: 20101004
  Receipt Date: 20101004
  Transmission Date: 20110411
  Serious: No
  Sender: FDA-Public Use
  Company Number: None

PATIENT
  Age: 59 Year
  Sex: Female
  Weight: 74.3899 kg

DRUGS (1)
  1. AVELOX [Suspect]
     Indication: EYE INFECTION
     Dosage: ONCE A DAY ONCE A DAY PO
     Route: 048
     Dates: start: 20100927, end: 20100930

REACTIONS (6)
  - DIZZINESS [None]
  - FATIGUE [None]
  - HYPOAESTHESIA [None]
  - MUSCLE DISORDER [None]
  - MUSCULAR WEAKNESS [None]
  - NECK PAIN [None]
